FAERS Safety Report 5947927-7 (Version None)
Quarter: 2008Q4

REPORT INFORMATION
  Report Type: 
  Country: None (occurrence: None)
  Receive Date: 20081111
  Receipt Date: 20081029
  Transmission Date: 20090506
  Serious: No
  Sender: FDA-Public Use
  Company Number: A0746803A

PATIENT
  Age: 26 Year
  Sex: Female

DRUGS (2)
  1. TREXIMET [Suspect]
     Indication: MIGRAINE
     Dosage: 1TAB VARIABLE DOSE
     Route: 048
     Dates: start: 20080701, end: 20080701
  2. THYROID MEDICATION [Concomitant]

REACTIONS (5)
  - ABDOMINAL PAIN UPPER [None]
  - ANXIETY [None]
  - DYSPNOEA [None]
  - MIGRAINE [None]
  - PALPITATIONS [None]
